FAERS Safety Report 7871301-X (Version None)
Quarter: 2011Q3

REPORT INFORMATION
  Report Type: 
  Country: None (occurrence: None)
  Receive Date: 20110926
  Receipt Date: 20110525
  Transmission Date: 20111222
  Serious: Yes (Hospitalization)
  Sender: FDA-Public Use
  Company Number: US_IT-11_00003

PATIENT
  Sex: Female

DRUGS (1)
  1. DEXRAZOXANE [Suspect]
     Indication: EXTRAVASATION
     Dates: start: 20110501

REACTIONS (3)
  - INFUSION SITE IRRITATION [None]
  - ERYTHEMA [None]
  - BURNING SENSATION [None]
